FAERS Safety Report 7257127-9 (Version None)
Quarter: 2011Q1

REPORT INFORMATION
  Report Type: 
  Country: None (occurrence: None)
  Receive Date: 20110129
  Receipt Date: 20100802
  Transmission Date: 20110831
  Serious: No
  Sender: FDA-Public Use
  Company Number: US-ABBOTT-10P-163-0661208-00

PATIENT
  Age: 47 Year
  Sex: Female

DRUGS (3)
  1. HUMIRA [Suspect]
     Indication: RHEUMATOID ARTHRITIS
     Dates: start: 20100514, end: 20100719
  2. OTHER RHEUMATOID ARTHRITIS MEDS [Concomitant]
     Indication: PRODUCT USED FOR UNKNOWN INDICATION
  3. HIGH CHOLESTEROL MED [Concomitant]
     Indication: PRODUCT USED FOR UNKNOWN INDICATION

REACTIONS (1)
  - WEIGHT INCREASED [None]
